FAERS Safety Report 8535506-7 (Version None)
Quarter: 2012Q3

REPORT INFORMATION
  Report Type: 
  Country: None (occurrence: None)
  Receive Date: 20120718
  Receipt Date: 20120718
  Transmission Date: 20120928
  Serious: Yes (Disabling)
  Sender: FDA-Public Use
  Company Number: None

PATIENT
  Age: 70 Year
  Sex: Female
  Weight: 81.6475 kg

DRUGS (2)
  1. CIPRO [Suspect]
     Indication: URINARY TRACT INFECTION
     Dosage: 500 MG BID PO ; 250 MG BID PO
     Route: 053
     Dates: start: 20111015, end: 20111025
  2. CIPRO [Suspect]
     Indication: URINARY TRACT INFECTION
     Dosage: 500 MG BID PO ; 250 MG BID PO
     Route: 053
     Dates: start: 20120410, end: 20120417

REACTIONS (1)
  - ROTATOR CUFF SYNDROME [None]
